FAERS Safety Report 8450142 (Version 4)
Quarter: 2014Q4

REPORT INFORMATION
  Report Type: Spontaneous
  Country: US (occurrence: US)
  Receive Date: 20120309
  Receipt Date: 20141226
  Transmission Date: 20150529
  Serious: Yes (Life-Threatening, Hospitalization, Other)
  Sender: FDA-Public Use
  Company Number: US-BAYER-2012-021623

PATIENT
  Age: 16 Year
  Sex: Female
  Weight: 68 kg

DRUGS (5)
  1. IBUPROFEN. [Concomitant]
     Active Substance: IBUPROFEN
     Dosage: UNK
  2. EPIPEN [Concomitant]
     Active Substance: EPINEPHRINE
     Indication: HYPERSENSITIVITY
     Dosage: UNK
     Dates: start: 20110128
  3. TRETINOIN. [Concomitant]
     Active Substance: TRETINOIN
     Dosage: 0.5 %, APLY TO DRY FACE EVERY NIGHT
     Route: 061
  4. ZARAH [Suspect]
     Active Substance: DROSPIRENONE\ETHINYL ESTRADIOL
     Indication: ACNE
     Dosage: UNK
     Dates: start: 201011, end: 20110127
  5. YASMIN [Suspect]
     Active Substance: DROSPIRENONE\ETHINYL ESTRADIOL
     Indication: ACNE
     Dosage: UNK
     Dates: start: 201011, end: 20110127

REACTIONS (12)
  - General physical health deterioration [None]
  - Anxiety [None]
  - Anhedonia [None]
  - Peripheral swelling [None]
  - Pelvic venous thrombosis [Recovered/Resolved]
  - Deep vein thrombosis [None]
  - Quality of life decreased [None]
  - Deep vein thrombosis [Recovered/Resolved]
  - Thrombophlebitis superficial [None]
  - Pain in extremity [None]
  - Thrombophlebitis superficial [Recovering/Resolving]
  - Emotional distress [None]

NARRATIVE: CASE EVENT DATE: 20110127
